FAERS Safety Report 18233625 (Version 1)
Quarter: 2020Q3

REPORT INFORMATION
  Report Type: Spontaneous
  Country: US (occurrence: US)
  Receive Date: 20200904
  Receipt Date: 20200904
  Transmission Date: 20201103
  Serious: Yes (Hospitalization)
  Sender: FDA-Public Use
  Company Number: US-MYLANLABS-2020M1076880

PATIENT
  Age: 33 Year
  Sex: Male

DRUGS (1)
  1. IBUPROFEN. [Suspect]
     Active Substance: IBUPROFEN
     Indication: PYREXIA
     Dosage: OTC IBUPROFEN TABLETS EVERY 4?6 HOURS SINCE LAST WEEK
     Route: 048

REACTIONS (2)
  - Oesophagitis haemorrhagic [Recovering/Resolving]
  - Gastrointestinal haemorrhage [Recovering/Resolving]
